FAERS Safety Report 9282971 (Version 3)
Quarter: 2015Q1

REPORT INFORMATION
  Report Type: Spontaneous
  Country: US (occurrence: US)
  Receive Date: 20130510
  Receipt Date: 20150327
  Transmission Date: 20150721
  Serious: Yes (Hospitalization, Other)
  Sender: FDA-Public Use
  Company Number: US-BAYER-2013-058395

PATIENT
  Age: 27 Year
  Sex: Female
  Weight: 56.24 kg

DRUGS (3)
  1. TRAMADOL [Concomitant]
     Active Substance: TRAMADOL
     Indication: PAIN
     Dosage: 50-100 MG [EVERY] 8 [HOURS]
     Route: 048
  2. BEYAZ [Suspect]
     Active Substance: DROSPIRENONE\ETHINYL ESTRADIOL\LEVOMEFOLATE CALCIUM
     Dosage: UNK
     Route: 048
     Dates: start: 201105, end: 201107
  3. YAZ [Suspect]
     Active Substance: DROSPIRENONE\ETHINYL ESTRADIOL
     Dosage: UNK
     Dates: start: 2010, end: 2011

REACTIONS (13)
  - Pain [None]
  - Abdominal pain [None]
  - Nausea [None]
  - General physical health deterioration [None]
  - Gait disturbance [None]
  - Injury [None]
  - Vomiting [None]
  - Pulmonary embolism [None]
  - Thrombosis [None]
  - Chest pain [None]
  - Abdominal discomfort [None]
  - Pelvic venous thrombosis [None]
  - Headache [None]

NARRATIVE: CASE EVENT DATE: 2011
